FAERS Safety Report 10513999 (Version 2)
Quarter: 2014Q4

REPORT INFORMATION
  Report Type: Spontaneous
  Country: IT (occurrence: IT)
  Receive Date: 20141013
  Receipt Date: 20141020
  Transmission Date: 20150528
  Serious: Yes (Hospitalization)
  Sender: FDA-Public Use
  Company Number: IT-TEVA-514040ISR

PATIENT
  Age: 38 Year
  Sex: Female
  Weight: 52 kg

DRUGS (11)
  1. PACLITAXEL MYLAN GENERICS [Suspect]
     Active Substance: PACLITAXEL
     Indication: OVARIAN CANCER
     Dosage: ADMINISTRATION FORM:CONCENTRATE FOR SOLUTION FOR INFUSION
     Route: 042
  2. AVASTIN [Suspect]
     Active Substance: BEVACIZUMAB
     Indication: OVARIAN CANCER
     Dosage: ADMINISTRATION FORM:CONCENTRATE FOR SOLUTION FOR INFUSION
     Route: 042
  3. DUROGESIC 25 MCG/HOUR [Concomitant]
     Dosage: 25 MICROGRAM DAILY;
     Route: 062
  4. CARBOPLATINO TEVA [Suspect]
     Active Substance: CARBOPLATIN
     Indication: OVARIAN CANCER
     Route: 042
  5. CHLOPHENAMINE MALEATE [Concomitant]
     Route: 042
  6. DEXAMETHASONE 21-PHOSPHATE [Concomitant]
     Route: 042
  7. PANTOPRAZOLO ACTAVIS 20 MG [Concomitant]
     Dosage: 20 MILLIGRAM DAILY; FORM OF ADMINISTRATION: GASTRORESISTANT TABLET
     Route: 048
  8. KANRENOL [Concomitant]
     Active Substance: CANRENOATE POTASSIUM
  9. SODIUM CHLORIDE. [Concomitant]
     Active Substance: SODIUM CHLORIDE
  10. ONDANSETRON HYDROCHLORIDE. [Concomitant]
     Active Substance: ONDANSETRON HYDROCHLORIDE
     Route: 042
  11. RANITIDINA HEXAL [Concomitant]
     Route: 042

REACTIONS (1)
  - Left ventricular dysfunction [Recovering/Resolving]

NARRATIVE: CASE EVENT DATE: 20140821
